FAERS Safety Report 5268129-6 (Version None)
Quarter: 2007Q1

REPORT INFORMATION
  Report Type: 
  Country: None (occurrence: None)
  Receive Date: 20070319
  Receipt Date: 20070309
  Transmission Date: 20070707
  Serious: Yes (Death)
  Sender: FDA-Public Use
  Company Number: US-ELI_LILLY_AND_COMPANY-US200703002270

PATIENT
  Age: 84 Year
  Sex: Male

DRUGS (1)
  1. ZYPREXA [Suspect]
     Dates: start: 20020101, end: 20040216

REACTIONS (3)
  - DEATH [None]
  - DIABETES MELLITUS INADEQUATE CONTROL [None]
  - TREMOR [None]
